FAERS Safety Report 5308203-9 (Version None)
Quarter: 2007Q2

REPORT INFORMATION
  Report Type: 
  Country: None (occurrence: None)
  Receive Date: 20070420
  Receipt Date: 20070411
  Transmission Date: 20071010
  Serious: Yes (Hospitalization, Other)
  Sender: FDA-Public Use
  Company Number: 163-20785-07031289

PATIENT
  Age: 92 Year
  Sex: Female

DRUGS (9)
  1. THALOMID [Suspect]
     Indication: MULTIPLE MYELOMA
     Dosage: 50 MG, 1 IN 1 D, ORAL
     Route: 048
     Dates: start: 20070308, end: 20070312
  2. DEXAMETHASONE TAB [Suspect]
     Indication: MULTIPLE MYELOMA
     Dates: start: 20070308
  3. DIGOXIN [Concomitant]
  4. FUROSEMIDE [Concomitant]
  5. POTASSIUM CHLORIDE [Concomitant]
  6. L-THYROXINE (LEVOTHYROXINE) [Concomitant]
  7. BECLOMETHASONE (BECLOMETASONE DIPROPIONATE) (INHALANT) [Concomitant]
  8. IPRATROPIUM (IPRATROPIUM) (INHALANT) [Concomitant]
  9. ALBUTEROL (SALBUTAMOL) (INHALANT) [Concomitant]

REACTIONS (7)
  - ATRIAL FIBRILLATION [None]
  - CARDIAC FAILURE CONGESTIVE [None]
  - DYSPNOEA [None]
  - GASTROINTESTINAL HAEMORRHAGE [None]
  - HYPOAESTHESIA [None]
  - MUSCLE SPASMS [None]
  - SENSATION OF HEAVINESS [None]
